FAERS Safety Report 10346985 (Version 1)
Quarter: 2014Q3

REPORT INFORMATION
  Report Type: Spontaneous
  Country: FR (occurrence: FR)
  Receive Date: 20140729
  Receipt Date: 20140729
  Transmission Date: 20150326
  Serious: Yes (Other)
  Sender: FDA-Public Use
  Company Number: FR-ASTRAZENECA-2014SE54443

PATIENT
  Age: 5761 Day
  Sex: Male

DRUGS (3)
  1. MOPRAL [Suspect]
     Active Substance: OMEPRAZOLE SODIUM
     Indication: JEJUNAL OPERATION
     Route: 048
  2. MOPRAL [Suspect]
     Active Substance: OMEPRAZOLE SODIUM
     Indication: JEJUNAL OPERATION
     Route: 048
     Dates: start: 201404
  3. MOPRAL [Suspect]
     Active Substance: OMEPRAZOLE SODIUM
     Indication: JEJUNAL OPERATION
     Route: 048
     Dates: start: 1998

REACTIONS (1)
  - Brunner^s gland hyperplasia [Not Recovered/Not Resolved]

NARRATIVE: CASE EVENT DATE: 20140425
